FAERS Safety Report 12755961 (Version 5)
Quarter: 2019Q3

REPORT INFORMATION
  Report Type: Report from Study
  Country: US (occurrence: US)
  Receive Date: 20160916
  Receipt Date: 20190902
  Transmission Date: 20191004
  Serious: Yes (Death, Life-Threatening, Hospitalization, Other)
  Sender: FDA-Public Use
  Company Number: US-BRISTOL-MYERS SQUIBB COMPANY-BMS-2016-074594

PATIENT
  Age: 77 Year
  Sex: Male

DRUGS (34)
  1. LASIX [Concomitant]
     Active Substance: FUROSEMIDE
     Indication: PRODUCT USED FOR UNKNOWN INDICATION
     Route: 065
  2. GLIPIZIDE. [Concomitant]
     Active Substance: GLIPIZIDE
     Indication: PRODUCT USED FOR UNKNOWN INDICATION
     Route: 065
  3. MORPHINE [Concomitant]
     Active Substance: MORPHINE
     Indication: PAIN
     Dosage: 2 MG, PRN
     Route: 042
     Dates: start: 20160820, end: 20160820
  4. IMODIUM [Concomitant]
     Active Substance: LOPERAMIDE HYDROCHLORIDE
     Indication: DIARRHOEA
     Dosage: 2 MG, PRN
     Route: 048
     Dates: start: 20160822, end: 20160823
  5. PROTONIX                           /00661201/ [Concomitant]
     Active Substance: OMEPRAZOLE
     Indication: PROPHYLAXIS
     Dosage: 40 MG, QD
     Route: 042
     Dates: start: 20160824, end: 20160826
  6. MAGNESIUM SULFATE. [Concomitant]
     Active Substance: MAGNESIUM SULFATE
     Indication: RENAL FAILURE
     Dosage: 2 G, AC
     Route: 042
     Dates: start: 20160821, end: 20160821
  7. LASIX [Concomitant]
     Active Substance: FUROSEMIDE
     Indication: HYPERTENSION
     Dosage: 40 MG, QD
     Route: 048
     Dates: start: 20160823, end: 20160824
  8. ALBUTEROL                          /00139501/ [Concomitant]
     Active Substance: ALBUTEROL
     Indication: DYSPNOEA
     Dosage: 2.5 MG, UNK
     Route: 050
     Dates: start: 20160823, end: 20160826
  9. LIPITOR [Concomitant]
     Active Substance: ATORVASTATIN CALCIUM
     Indication: PRODUCT USED FOR UNKNOWN INDICATION
     Route: 065
  10. ALLOPURINOL. [Concomitant]
     Active Substance: ALLOPURINOL
     Indication: PRODUCT USED FOR UNKNOWN INDICATION
     Route: 065
  11. INSULIN [Concomitant]
     Active Substance: INSULIN NOS
     Indication: DIABETES MELLITUS
     Dosage: UNK
     Route: 058
     Dates: start: 20160820, end: 20160826
  12. LISINOPRIL. [Concomitant]
     Active Substance: LISINOPRIL
     Indication: HYPERTENSION
     Dosage: 20 MG, BID
     Route: 048
     Dates: start: 20160823, end: 20160823
  13. LOMOTIL [Concomitant]
     Active Substance: ATROPINE SULFATE\DIPHENOXYLATE HYDROCHLORIDE
     Indication: DIARRHOEA
     Dosage: 2.5 MG, PRN
     Route: 048
     Dates: start: 20160823, end: 20160823
  14. NORMAL SALINE [Concomitant]
     Active Substance: SODIUM CHLORIDE
     Indication: RHABDOMYOLYSIS
     Dosage: 1000 ML, UNK
     Route: 042
     Dates: start: 20160820, end: 20160826
  15. ASA [Concomitant]
     Active Substance: ASPIRIN
     Indication: PROPHYLAXIS
     Dosage: 81 MG, QD
     Route: 048
     Dates: start: 20160821, end: 20160826
  16. ATROVENT [Concomitant]
     Active Substance: IPRATROPIUM BROMIDE
     Indication: DYSPNOEA
     Dosage: 500 ?G, UNK
     Route: 050
     Dates: start: 20160823, end: 20160826
  17. CEFEPIME [Concomitant]
     Active Substance: CEFEPIME HYDROCHLORIDE
     Indication: NEUTROPENIA
     Dosage: QD
     Route: 040
     Dates: start: 20160820, end: 20160826
  18. HYDROCODONE [Concomitant]
     Active Substance: HYDROCODONE
     Indication: PAIN
     Dosage: 325 MG, PRN
     Route: 048
     Dates: start: 20160821, end: 20160824
  19. SODIUM BICARBONATE. [Concomitant]
     Active Substance: SODIUM BICARBONATE
     Indication: RHABDOMYOLYSIS
     Dosage: 150 MEQ, AC
     Route: 042
     Dates: start: 20160821, end: 20160821
  20. HYDRALAZINE [Concomitant]
     Active Substance: HYDRALAZINE HYDROCHLORIDE
     Indication: RENAL FAILURE
     Dosage: 25 MG, UNK
     Route: 048
     Dates: start: 20160822, end: 20160824
  21. QUESTRAN [Concomitant]
     Active Substance: CHOLESTYRAMINE
     Indication: BLOOD CHOLESTEROL INCREASED
     Dosage: 4 MG, QID
     Route: 048
     Dates: start: 20160822, end: 20160825
  22. AMLODIPINE [Concomitant]
     Active Substance: AMLODIPINE BESYLATE
     Indication: HYPERTENSION
     Dosage: 5 MG, BID
     Route: 048
     Dates: start: 20160821, end: 20160824
  23. METFORMIN [Concomitant]
     Active Substance: METFORMIN HYDROCHLORIDE
     Indication: PRODUCT USED FOR UNKNOWN INDICATION
     Route: 065
  24. PANTOPRAZOLE [Concomitant]
     Active Substance: PANTOPRAZOLE
     Indication: PROPHYLAXIS
     Dosage: 40 MG, QD
     Route: 048
     Dates: start: 20160820, end: 20160823
  25. FILGRASTINE [Concomitant]
     Active Substance: FILGRASTIM
     Indication: NEUTROPENIA
     Dosage: 480 ?G, QD
     Route: 058
     Dates: start: 20160821, end: 20160825
  26. SOLU-CORTEF [Concomitant]
     Active Substance: HYDROCORTISONE SODIUM SUCCINATE
     Indication: RHABDOMYOLYSIS
     Dosage: 100 MG, UNK
     Route: 042
     Dates: start: 20160822, end: 20160826
  27. PROPOFOL. [Concomitant]
     Active Substance: PROPOFOL
     Indication: RESPIRATORY DISTRESS
     Dosage: 1000 MG, UNK
     Route: 042
     Dates: start: 20160826, end: 20160826
  28. NIVOLUMAB [Suspect]
     Active Substance: NIVOLUMAB
     Indication: METASTATIC MALIGNANT MELANOMA
     Dosage: 117 MILLIGRAM, Q3WK
     Route: 042
     Dates: start: 20160725
  29. HEPARIN [Concomitant]
     Active Substance: HEPARIN SODIUM
     Indication: PROPHYLAXIS
     Dosage: UNK
     Route: 042
     Dates: start: 20160820, end: 20160825
  30. ATIVAN [Concomitant]
     Active Substance: LORAZEPAM
     Indication: RESPIRATORY DISTRESS
     Dosage: 0.5 MG, UNK
     Route: 042
     Dates: start: 20160826, end: 20160826
  31. NOREPINEPHRINE. [Concomitant]
     Active Substance: NOREPINEPHRINE
     Indication: RESPIRATORY DISTRESS
     Dosage: 16 MG, UNK
     Route: 042
     Dates: start: 20160826, end: 20160826
  32. YERVOY [Suspect]
     Active Substance: IPILIMUMAB
     Indication: METASTATIC MALIGNANT MELANOMA
     Dosage: 350 MILLIGRAM, Q3WK
     Route: 042
     Dates: start: 20160725
  33. ACTOS [Concomitant]
     Active Substance: PIOGLITAZONE HYDROCHLORIDE
     Indication: PRODUCT USED FOR UNKNOWN INDICATION
     Route: 065
  34. ASA [Concomitant]
     Active Substance: ASPIRIN
     Indication: PAIN
     Dosage: 325 MG, AC
     Route: 048
     Dates: start: 20160820, end: 20160820

REACTIONS (8)
  - Lethargy [Fatal]
  - Rhabdomyolysis [Unknown]
  - Diabetes mellitus inadequate control [Unknown]
  - Respiratory failure [Fatal]
  - Septic shock [Unknown]
  - Neutropenia [Unknown]
  - Metabolic acidosis [Unknown]
  - Diarrhoea [Unknown]

NARRATIVE: CASE EVENT DATE: 20160820
